FAERS Safety Report 8221365-9 (Version None)
Quarter: 2012Q1

REPORT INFORMATION
  Report Type: 
  Country: None (occurrence: None)
  Receive Date: 20120316
  Receipt Date: 20120228
  Transmission Date: 20120608
  Serious: Yes (Hospitalization)
  Sender: FDA-Public Use
  Company Number: JPI-P-020042

PATIENT
  Age: 31 Year
  Sex: Female

DRUGS (2)
  1. XYREM [Suspect]
     Indication: CATAPLEXY
     Dosage: 8; 9 GM (4; 4.5 GM, 2 IN 1 D), ORAL
     Route: 048
     Dates: start: 20080430
  2. XYREM [Suspect]
     Indication: CATAPLEXY
     Dosage: 8; 9 GM (4; 4.5 GM, 2 IN 1 D), ORAL
     Route: 048
     Dates: start: 20050411

REACTIONS (4)
  - MENTAL DISORDER [None]
  - COAGULOPATHY [None]
  - AMNESIA [None]
  - PULMONARY EMBOLISM [None]
